FAERS Safety Report 7792931-X (Version None)
Quarter: 2011Q4

REPORT INFORMATION
  Report Type: 
  Country: None (occurrence: None)
  Receive Date: 20111003
  Receipt Date: 20110922
  Transmission Date: 20120403
  Serious: Yes (Other)
  Sender: FDA-Public Use
  Company Number: PHEH2011US05265

PATIENT
  Sex: Male
  Weight: 76 kg

DRUGS (4)
  1. GLEEVEC [Suspect]
     Indication: MALIGNANT MELANOMA
     Dosage: 400 MG, QD
     Route: 048
  2. PRILOSEC [Concomitant]
     Dosage: 20 MG, DELAYED RELEASE
  3. MORPHINE SULFATE [Concomitant]
     Dosage: 10 MG, UNK
  4. NICOTINE [Concomitant]
     Dosage: 14 MG, UNK

REACTIONS (15)
  - NEURILEMMOMA [None]
  - EYE DISORDER [None]
  - BONE PAIN [None]
  - ARTHRALGIA [None]
  - ANXIETY [None]
  - BONE EROSION [None]
  - RIB FRACTURE [None]
  - METASTASES TO LIVER [None]
  - METASTASES TO PLEURA [None]
  - TINNITUS [None]
  - NEOPLASM MALIGNANT [None]
  - METASTASES TO THORAX [None]
  - NAUSEA [None]
  - MALIGNANT MELANOMA [None]
  - INJURY [None]
